FAERS Safety Report 4640618-4 (Version None)
Quarter: 2005Q2

REPORT INFORMATION
  Report Type: 
  Country: None (occurrence: None)
  Receive Date: 20050419
  Receipt Date: 20050406
  Transmission Date: 20051028
  Serious: Yes (Hospitalization)
  Sender: FDA-Public Use
  Company Number: 2005041976

PATIENT
  Age: 30 Year
  Sex: Female
  Weight: 44 kg

DRUGS (9)
  1. DOSTINEX [Suspect]
     Indication: HYPERPROLACTINAEMIA
     Dosage: 0.25  MG (0.25 MG, WEEKLY), ORAL
     Route: 048
     Dates: start: 20050214, end: 20050228
  2. VALISONE-G         (BETAMETHASONE VALERATE, GENTAMICIN SULFATE) [Concomitant]
  3. HEPARINOID [Concomitant]
  4. CLOBETASONE BUTYRATE (CLOBETASONE BUTYRATE) [Concomitant]
  5. COIX SEED EXTRACT (COIX SEED EXTRACT) [Concomitant]
  6. OLOPATADINE HYDROCHLORIDE (OLOPATADINE HYDROCHLORIDE) [Concomitant]
  7. CETIRIZINE HCL [Concomitant]
  8. MOSAPRIDE CITRATE (MOSAPRIDE CITRATE) [Concomitant]
  9. ACETAMINOPHEN [Concomitant]

REACTIONS (5)
  - ATRIAL FIBRILLATION [None]
  - ATRIAL FLUTTER [None]
  - MALAISE [None]
  - PALPITATIONS [None]
  - TACHYCARDIA [None]
